FAERS Safety Report 4752002-3 (Version None)
Quarter: 2005Q3

REPORT INFORMATION
  Report Type: 
  Country: None (occurrence: None)
  Receive Date: 20050824
  Receipt Date: 20050314
  Transmission Date: 20060218
  Serious: Yes (Hospitalization, Disabling, Other)
  Sender: FDA-Public Use
  Company Number: US-MERCK-0503USA02935

PATIENT
  Age: 52 Year
  Sex: Female
  Weight: 91 kg

DRUGS (8)
  1. VIOXX [Suspect]
     Indication: ARTHRALGIA
     Route: 048
     Dates: start: 20000101, end: 20040101
  2. MOTRIN [Concomitant]
     Route: 065
     Dates: start: 19980101, end: 20030101
  3. TYLENOL [Concomitant]
     Indication: ARTHRITIS
     Route: 065
     Dates: start: 19980101
  4. MECLIZINE [Concomitant]
     Indication: DIZZINESS
     Route: 065
  5. MECLIZINE [Concomitant]
     Indication: VERTIGO
     Route: 065
  6. SYNTHROID [Concomitant]
     Indication: THYROID DISORDER
     Route: 065
     Dates: start: 20020101
  7. CELEXA [Concomitant]
     Indication: DEPRESSION
     Route: 065
     Dates: start: 19900101
  8. AMITRIPTYLINE HYDROCHLORIDE [Concomitant]
     Indication: DEPRESSION
     Route: 065
     Dates: start: 19900101

REACTIONS (14)
  - ADVERSE EVENT [None]
  - ASTHENIA [None]
  - BACK PAIN [None]
  - CHRONIC FATIGUE SYNDROME [None]
  - DYSPNOEA [None]
  - GLAUCOMA [None]
  - HYPOAESTHESIA [None]
  - MYOCARDIAL INFARCTION [None]
  - NECK PAIN [None]
  - OEDEMA PERIPHERAL [None]
  - SENSATION OF PRESSURE [None]
  - SILENT MYOCARDIAL INFARCTION [None]
  - STOMACH DISCOMFORT [None]
  - THYROID DISORDER [None]
